FAERS Safety Report 19738612 (Version 29)
Quarter: 2024Q2

REPORT INFORMATION
  Report Type: Report from Study
  Country: DE (occurrence: DE)
  Receive Date: 20210823
  Receipt Date: 20240628
  Transmission Date: 20240716
  Serious: Yes (Other)
  Sender: FDA-Public Use
  Company Number: DE-002147023-PHHY2019DE061773

PATIENT
  Sex: Female
  Weight: 98 kg

DRUGS (9)
  1. LETROZOLE [Suspect]
     Active Substance: LETROZOLE
     Indication: Hormone receptor positive HER2 negative breast cancer
     Dosage: 2.5 MILLIGRAM, QD (2.5 MG, QD)
     Route: 048
     Dates: start: 20190228, end: 20210121
  2. LETROZOLE [Suspect]
     Active Substance: LETROZOLE
     Dosage: 2.5 MILLIGRAM, QD (2.5 MG, QD)
     Route: 048
     Dates: start: 20210218
  3. KISQALI [Suspect]
     Active Substance: RIBOCICLIB
     Indication: Hormone receptor positive HER2 negative breast cancer
     Dosage: 600 MG, QD (21 DAYS OF INTAKE, 7 DAYS PAUSE)
     Route: 048
     Dates: start: 20190228, end: 20200114
  4. KISQALI [Suspect]
     Active Substance: RIBOCICLIB
     Dosage: 600 MG, QD (14 DAYS OF INTAKE, 7 DAYS PAUSE)
     Route: 048
     Dates: start: 20200206, end: 20200226
  5. KISQALI [Suspect]
     Active Substance: RIBOCICLIB
     Dosage: 600 MG, QD (21 DAYS OF INTAKE, 7 DAYS PAUSE)
     Route: 048
     Dates: start: 20200227, end: 20200812
  6. KISQALI [Suspect]
     Active Substance: RIBOCICLIB
     Dosage: 600 MG,QD (SCHEMA 21 DAYS INTAKE, 7 DAYS PAUSE)
     Route: 048
     Dates: start: 20200910, end: 20201104
  7. KISQALI [Suspect]
     Active Substance: RIBOCICLIB
     Dosage: 400 MG,QD (SCHEMA 21 DAYS INTAKE, 7 DAYS PAUSE)
     Route: 048
     Dates: start: 20210218, end: 20220119
  8. KISQALI [Suspect]
     Active Substance: RIBOCICLIB
     Dosage: 400 MG,QD (SCHEMA 21 DAYS INTAKE, 7 DA
     Route: 048
     Dates: start: 20220128, end: 20230516
  9. KISQALI [Suspect]
     Active Substance: RIBOCICLIB
     Dosage: 400 MG, QD (SCHEMA 21 DAYS OF INTAKE, 7 DAYS PAUSE)
     Route: 048
     Dates: start: 20230524

REACTIONS (7)
  - Blood thyroid stimulating hormone decreased [Recovered/Resolved]
  - Neutropenia [Recovered/Resolved]
  - Leukopenia [Not Recovered/Not Resolved]
  - Sleep disorder [Unknown]
  - Bronchitis [Recovered/Resolved]
  - Neutrophil count decreased [Recovered/Resolved]
  - Dental caries [Recovered/Resolved]

NARRATIVE: CASE EVENT DATE: 20190314
